FAERS Safety Report 18234111 (Version 2)
Quarter: 2021Q2

REPORT INFORMATION
  Report Type: Spontaneous
  Country: CO (occurrence: CO)
  Receive Date: 20200904
  Receipt Date: 20210614
  Transmission Date: 20210717
  Serious: Yes (Other)
  Sender: FDA-Public Use
  Company Number: CO-EMD SERONO-9183169

PATIENT
  Age: 73 Year
  Sex: Female
  Weight: 76 kg

DRUGS (14)
  1. VICTOZA [Concomitant]
     Active Substance: LIRAGLUTIDE
     Indication: PRODUCT USED FOR UNKNOWN INDICATION
  2. TIROXIN                            /00068002/ [Concomitant]
     Indication: HYPOTHYROIDISM
  3. REVOLADE [Suspect]
     Active Substance: ELTROMBOPAG OLAMINE
     Indication: IMMUNE THROMBOCYTOPENIA
     Dosage: FROM: 02 FEB 2017 TO 05 APR 2017
     Route: 048
  4. REVOLADE [Suspect]
     Active Substance: ELTROMBOPAG OLAMINE
     Dosage: DOSE INCREASED
  5. METFORMIN [Suspect]
     Active Substance: METFORMIN HYDROCHLORIDE
     Indication: DIABETES MELLITUS
     Route: 048
     Dates: start: 201701
  6. ATORVASTATIN [Suspect]
     Active Substance: ATORVASTATIN
     Indication: PRODUCT USED FOR UNKNOWN INDICATION
  7. REVOLADE [Suspect]
     Active Substance: ELTROMBOPAG OLAMINE
     Dosage: DOSE DECREASED (THERAPY END DATE: 14 JUL 2017)
     Route: 048
  8. EUTIROX [Concomitant]
     Active Substance: LEVOTHYROXINE SODIUM
     Indication: HYPOTHYROIDISM
  9. REVOLADE [Suspect]
     Active Substance: ELTROMBOPAG OLAMINE
     Dosage: DOSE INCREASED (FROM: 15 JUL 2017 TO JUL 2017)
     Route: 048
  10. CALCIFORTE                         /01045901/ [Concomitant]
     Indication: PRODUCT USED FOR UNKNOWN INDICATION
  11. EUTHYROX [Concomitant]
     Active Substance: LEVOTHYROXINE SODIUM
     Indication: HYPOTHYROIDISM
  12. LIRAGLUTIDE [Concomitant]
     Active Substance: LIRAGLUTIDE
     Indication: PRODUCT USED FOR UNKNOWN INDICATION
  13. REVOLADE [Suspect]
     Active Substance: ELTROMBOPAG OLAMINE
     Dosage: DOSE INCREASED (FROM: 15 MAY 2017 TO JUN 2017)
     Route: 048
  14. REVOLADE [Suspect]
     Active Substance: ELTROMBOPAG OLAMINE
     Dosage: DOSE DECREASED (THERAPY START DATE: 19 JUL 2017)
     Route: 048

REACTIONS (9)
  - Pain in extremity [Unknown]
  - Malaise [Unknown]
  - Fatigue [Unknown]
  - Nervousness [Unknown]
  - Dizziness [Unknown]
  - Asthenia [Unknown]
  - Choking sensation [Unknown]
  - Intracranial aneurysm [Unknown]
  - Feeling of despair [Unknown]

NARRATIVE: CASE EVENT DATE: 201701
